FAERS Safety Report 7657686-8 (Version None)
Quarter: 2011Q3

REPORT INFORMATION
  Report Type: 
  Country: None (occurrence: None)
  Receive Date: 20110804
  Receipt Date: 20110726
  Transmission Date: 20111222
  Serious: Yes (Other)
  Sender: FDA-Public Use
  Company Number: US-ASTRAZENECA-2011SE44448

PATIENT
  Age: 55 Year
  Sex: Female

DRUGS (6)
  1. CALCIUM ACETATE [Concomitant]
     Dosage: 1200 - 1000 MILLIGRAM-UN BID
     Route: 048
  2. MULTI-VITAMINS [Concomitant]
     Route: 048
  3. VANDETANIB [Suspect]
     Indication: THYROID CANCER
     Dosage: FILM COATED TABLET
     Route: 048
     Dates: end: 20110721
  4. ACETAMINOPHEN [Concomitant]
     Route: 048
  5. SYNTHROID [Concomitant]
     Route: 048
  6. AMBIEN [Concomitant]
     Route: 048

REACTIONS (3)
  - LOSS OF CONSCIOUSNESS [None]
  - ELECTROCARDIOGRAM QT PROLONGED [None]
  - BLOOD PRESSURE INCREASED [None]
